FAERS Safety Report 13660192 (Version 1)
Quarter: 2017Q2

REPORT INFORMATION
  Report Type: Report from Study
  Country: US (occurrence: US)
  Receive Date: 20170616
  Receipt Date: 20170616
  Transmission Date: 20170830
  Serious: No
  Sender: FDA-Public Use
  Company Number: US-AMGEN-USASL2017090035

PATIENT
  Sex: Female

DRUGS (1)
  1. ENBREL [Suspect]
     Active Substance: ETANERCEPT
     Indication: PSORIASIS
     Dosage: 50 MG, 2 TIMES/WK
     Route: 065

REACTIONS (6)
  - Injection site swelling [Recovered/Resolved]
  - Fatigue [Unknown]
  - Injection site erythema [Recovered/Resolved]
  - Infection [Unknown]
  - Viral upper respiratory tract infection [Unknown]
  - Somnolence [Unknown]
